FAERS Safety Report 25428786 (Version 1)
Quarter: 2025Q2

REPORT INFORMATION
  Report Type: Spontaneous
  Country: DE (occurrence: DE)
  Receive Date: 20250612
  Receipt Date: 20250612
  Transmission Date: 20250717
  Serious: Yes (Other)
  Sender: AMGEN
  Company Number: DE-AMGEN-DEUSP2025111555

PATIENT
  Sex: Female

DRUGS (2)
  1. PROLIA [Suspect]
     Active Substance: DENOSUMAB
     Indication: Osteoporosis postmenopausal
     Dosage: 60 MILLIGRAM, Q6MO
     Route: 065
  2. ROMOSOZUMAB [Suspect]
     Active Substance: ROMOSOZUMAB
     Indication: Product used for unknown indication
     Route: 065

REACTIONS (2)
  - Multiple fractures [Unknown]
  - Therapy non-responder [Unknown]
